FAERS Safety Report 11941618 (Version 2)
Quarter: 2016Q1

REPORT INFORMATION
  Report Type: Spontaneous
  Country: TW (occurrence: TW)
  Receive Date: 20160123
  Receipt Date: 20160129
  Transmission Date: 20160526
  Serious: Yes (Other)
  Sender: FDA-Public Use
  Company Number: TW-AMGEN-TWNSP2016007268

PATIENT
  Age: 35 Year
  Sex: Male

DRUGS (5)
  1. METHOTREXATE (METHOTREXATE SODIUM) [Concomitant]
     Active Substance: METHOTREXATE SODIUM
     Dosage: 7.5 MG, ONCE A WEEK
  2. MELOXICAM. [Concomitant]
     Active Substance: MELOXICAM
     Dosage: 1 DF, A DAY
  3. ENBREL [Suspect]
     Active Substance: ETANERCEPT
     Indication: ANKYLOSING SPONDYLITIS
     Dosage: 25 MG, TWICE A WEEK
     Route: 058
     Dates: start: 20100517, end: 20101004
  4. ENBREL [Suspect]
     Active Substance: ETANERCEPT
     Dosage: 25 MG, ONCE A WEEK
     Route: 058
     Dates: start: 20101004
  5. FOLIC ACID. [Concomitant]
     Active Substance: FOLIC ACID
     Dosage: 1 DF, A DAY

REACTIONS (1)
  - Iritis [Recovering/Resolving]
